FAERS Safety Report 20152415 (Version 1)
Quarter: 2021Q4

REPORT INFORMATION
  Report Type: Spontaneous
  Country: CN (occurrence: CN)
  Receive Date: 20211206
  Receipt Date: 20211206
  Transmission Date: 20220303
  Serious: Yes (Other)
  Sender: FDA-Public Use
  Company Number: CN-PFIZER INC-202101648308

PATIENT
  Age: 53 Year
  Sex: Female
  Weight: 72.7 kg

DRUGS (3)
  1. EPIRUBICIN [Suspect]
     Active Substance: EPIRUBICIN
     Indication: Breast mass
     Dosage: 150.000 MG, 1X/DAY
     Route: 041
     Dates: start: 20211105, end: 20211105
  2. DOCETAXEL [Suspect]
     Active Substance: DOCETAXEL
     Indication: Breast mass
     Dosage: 120.000 MG, 1X/DAY
     Route: 041
     Dates: start: 20211105, end: 20211105
  3. CYCLOPHOSPHAMIDE [Suspect]
     Active Substance: CYCLOPHOSPHAMIDE
     Indication: Breast mass
     Dosage: 0.800000 G, 1X/DAY
     Route: 041
     Dates: start: 20211105, end: 20211105

REACTIONS (2)
  - Myelosuppression [Unknown]
  - Hepatic function abnormal [Unknown]

NARRATIVE: CASE EVENT DATE: 20211111
